FAERS Safety Report 10029850 (Version 1)
Quarter: 2014Q1

REPORT INFORMATION
  Report Type: Spontaneous
  Country: US (occurrence: None)
  Receive Date: 20140320
  Receipt Date: 20140320
  Transmission Date: 20141002
  Serious: Yes (Life-Threatening)
  Sender: FDA-Public Use
  Company Number: 001691831A

PATIENT
  Age: 20 Year
  Sex: Female

DRUGS (3)
  1. PROACTIVE + SKIN SMOOTHING EXFOLIATOR [Suspect]
     Indication: ACNE
     Dosage: ONCE DAILY DERMAL
     Dates: start: 20140225, end: 20140226
  2. PROACTIV + PORE TARGETING TREATMENT [Suspect]
     Indication: ACNE
     Dosage: ONCE DAILY DERMAL
     Dates: start: 20140225, end: 20140226
  3. PROACTIV + COMPLEXION PERFECTING HYDRATOR [Suspect]
     Indication: ACNE
     Dosage: ONCE DAILY DERMAL
     Dates: start: 20140225, end: 20140226

REACTIONS (5)
  - Hypersensitivity [None]
  - Pain [None]
  - Urticaria [None]
  - Burning sensation [None]
  - Urticaria [None]
